FAERS Safety Report 5413997-8 (Version None)
Quarter: 2007Q3

REPORT INFORMATION
  Report Type: 
  Country: None (occurrence: None)
  Receive Date: 20070814
  Receipt Date: 20070809
  Transmission Date: 20080115
  Serious: Yes (Life-Threatening, Hospitalization)
  Sender: FDA-Public Use
  Company Number: US-SANOFI-SYNTHELABO-D01200705351

PATIENT
  Sex: Male
  Weight: 86 kg

DRUGS (15)
  1. CLOPIDOGREL [Suspect]
     Indication: ACUTE CORONARY SYNDROME
     Dosage: 300 MG (+PLACEBO) D1 FOLLOWED BY 75 MG (+PLACEBO) D2 TO D7; 75 MG FROM D8 TO 30
     Route: 048
  2. VANCOMYCIN [Concomitant]
  3. ANCEF [Concomitant]
  4. NIASPAN [Concomitant]
  5. LOPRESSOR [Concomitant]
  6. ZOCOR [Concomitant]
  7. SEROQUEL [Concomitant]
  8. DEPAKOTE [Concomitant]
  9. CHANTIX [Concomitant]
  10. MAGNESIUM OXIDE [Concomitant]
  11. CARAFATE [Concomitant]
  12. PREDNISONE TAB [Concomitant]
  13. ASA HIGH DOSE [Concomitant]
     Indication: ACUTE CORONARY SYNDROME
     Dosage: AT LEAST 300 MG D1; 300-325 MG FROM D2 TO D30
     Route: 048
     Dates: start: 20070730
  14. CLOPIDOGREL [Suspect]
     Indication: ACUTE CORONARY SYNDROME
     Dosage: 600 MG LD D1 FOLLOWED BY 150 MG FROM D2 TO D7; 75 MG FROM D8 TO 30
     Route: 048
     Dates: start: 20070730
  15. LANOXIN [Concomitant]

REACTIONS (1)
  - CARDIAC TAMPONADE [None]
